FAERS Safety Report 6960359-8 (Version None)
Quarter: 2010Q3

REPORT INFORMATION
  Report Type: 
  Country: None (occurrence: None)
  Receive Date: 20100901
  Receipt Date: 20100818
  Transmission Date: 20110219
  Serious: Yes (Hospitalization)
  Sender: FDA-Public Use
  Company Number: US-ELI_LILLY_AND_COMPANY-US201008005451

PATIENT
  Sex: Female
  Weight: 117.91 kg

DRUGS (1)
  1. PRASUGREL HYDROCHLORIDE [Suspect]
     Dates: start: 20100723

REACTIONS (2)
  - ACUTE CORONARY SYNDROME [None]
  - THROMBOSIS [None]
